FAERS Safety Report 21091276 (Version 6)
Quarter: 2025Q2

REPORT INFORMATION
  Report Type: Report from Study
  Country: US (occurrence: US)
  Receive Date: 20220716
  Receipt Date: 20250409
  Transmission Date: 20250716
  Serious: Yes (Hospitalization, Other)
  Sender: TAKEDA
  Company Number: US-TAKEDA-2022TUS047792

PATIENT
  Age: 52 Year
  Sex: Male
  Weight: 99 kg

DRUGS (18)
  1. HUMAN IMMUNOGLOBULIN G [Suspect]
     Active Substance: HUMAN IMMUNOGLOBULIN G
     Indication: Primary immunodeficiency syndrome
     Dosage: 10 GRAM, 1/WEEK
     Dates: start: 20210817
  2. HUMAN IMMUNOGLOBULIN G [Suspect]
     Active Substance: HUMAN IMMUNOGLOBULIN G
  3. CUVITRU [Suspect]
     Active Substance: HUMAN IMMUNOGLOBULIN G
     Indication: Primary immunodeficiency syndrome
  4. CUVITRU [Suspect]
     Active Substance: HUMAN IMMUNOGLOBULIN G
     Dosage: 10 GRAM, 1/WEEK
     Dates: start: 20210817
  5. CUVITRU [Suspect]
     Active Substance: HUMAN IMMUNOGLOBULIN G
  6. DIPHENHYDRAMINE [Concomitant]
     Active Substance: DIPHENHYDRAMINE
  7. PFIZER-BIONTECH COVID-19 VACCINE [Concomitant]
     Active Substance: TOZINAMERAN
  8. EPINEPHRINE [Concomitant]
     Active Substance: EPINEPHRINE
  9. VITAMIN B [Concomitant]
     Active Substance: VITAMIN B
  10. LISINOPRIL [Concomitant]
     Active Substance: LISINOPRIL
  11. ZINC [Concomitant]
     Active Substance: ZINC
  12. ACETAMINOPHEN [Concomitant]
     Active Substance: ACETAMINOPHEN
  13. XARELTO [Concomitant]
     Active Substance: RIVAROXABAN
  14. SIMVASTATIN [Concomitant]
     Active Substance: SIMVASTATIN
  15. CALCIUM [Concomitant]
     Active Substance: CALCIUM
  16. LIDOCAINE [Concomitant]
     Active Substance: LIDOCAINE
  17. VITAMIN A [Concomitant]
     Active Substance: VITAMIN A
  18. Lmx [Concomitant]

REACTIONS (11)
  - Eye infection [Unknown]
  - Skin infection [Unknown]
  - Thrombosis [Unknown]
  - Device related bacteraemia [Unknown]
  - Vascular device infection [Unknown]
  - Sinusitis [Not Recovered/Not Resolved]
  - Infection [Unknown]
  - Inability to afford medication [Unknown]
  - Fatigue [Unknown]
  - Incorrect product administration duration [Unknown]
  - Product dose omission issue [Recovering/Resolving]

NARRATIVE: CASE EVENT DATE: 20210713
